FAERS Safety Report 15120504 (Version 2)
Quarter: 2018Q3

REPORT INFORMATION
  Report Type: Spontaneous
  Country: US (occurrence: US)
  Receive Date: 20180709
  Receipt Date: 20180717
  Transmission Date: 20181010
  Serious: Yes (Other)
  Sender: FDA-Public Use
  Company Number: US-APOTEX-2018AP016694

PATIENT

DRUGS (2)
  1. FLUTICASONE PROPIONATE NASAL SPRAY USP [Suspect]
     Active Substance: FLUTICASONE PROPIONATE
     Indication: RHINITIS ALLERGIC
     Dosage: 50 ?G, QD
     Route: 045
     Dates: end: 201802
  2. FLUTICASONE PROPIONATE NASAL SPRAY USP [Suspect]
     Active Substance: FLUTICASONE PROPIONATE
     Indication: NASAL CONGESTION
     Dosage: 50 ?G, PRN
     Route: 045
     Dates: start: 2015

REACTIONS (8)
  - Epistaxis [Unknown]
  - Nerve injury [Recovering/Resolving]
  - Sinusitis [Unknown]
  - Nasal odour [Recovering/Resolving]
  - Suspected product contamination [Unknown]
  - Head discomfort [Unknown]
  - Paranasal sinus discomfort [Unknown]
  - Cough [Unknown]

NARRATIVE: CASE EVENT DATE: 20180615
